FAERS Safety Report 19043001 (Version 2)
Quarter: 2021Q3

REPORT INFORMATION
  Report Type: Report from Study
  Country: BE (occurrence: BE)
  Receive Date: 20210323
  Receipt Date: 20210830
  Transmission Date: 20211014
  Serious: Yes (Death, Life-Threatening, Hospitalization)
  Sender: FDA-Public Use
  Company Number: BE-MYLANLABS-2021M1015750

PATIENT
  Age: 45 Year
  Sex: Female
  Weight: 104.2 kg

DRUGS (11)
  1. METHYLPREDNISOLONE. [Suspect]
     Active Substance: METHYLPREDNISOLONE
     Dosage: 112 MILLIGRAM, QD (112 MG, 1X/DAY)
     Route: 048
     Dates: start: 20210201, end: 20210208
  2. METHYLPREDNISOLONE. [Suspect]
     Active Substance: METHYLPREDNISOLONE
     Indication: CHRONIC GRAFT VERSUS HOST DISEASE
     Dosage: 60 MILLIGRAM, QD
     Route: 042
     Dates: start: 20210224, end: 20210226
  3. LINEZOLID. [Suspect]
     Active Substance: LINEZOLID
     Indication: PRODUCT USED FOR UNKNOWN INDICATION
     Dosage: UNK
     Dates: start: 20210213
  4. METHYLPREDNISOLONE. [Suspect]
     Active Substance: METHYLPREDNISOLONE
     Dosage: 96 MILLIGRAM, QD (96 MG, 1X/DAY)
     Route: 048
     Dates: start: 20210209, end: 20210209
  5. METHYLPREDNISOLONE. [Suspect]
     Active Substance: METHYLPREDNISOLONE
     Dosage: 72 MILLIGRAM, QD (72 MG, 1X/DAY)
     Route: 048
     Dates: start: 20210216, end: 20210218
  6. ITACITINIB [Suspect]
     Active Substance: ITACITINIB
     Indication: CHRONIC GRAFT VERSUS HOST DISEASE
     Dosage: 200 MILLIGRAM, QD (200 MG, 1X/DAY)
     Route: 048
     Dates: start: 20210125
  7. METHYLPREDNISOLONE. [Suspect]
     Active Substance: METHYLPREDNISOLONE
     Indication: CHRONIC GRAFT VERSUS HOST DISEASE
     Dosage: 128 MILLIGRAM, QD (64 MG, 2X/DAY)
     Route: 048
     Dates: start: 20210123, end: 20210131
  8. METHYLPREDNISOLONE. [Suspect]
     Active Substance: METHYLPREDNISOLONE
     Dosage: 32 MILLIGRAM, QD (32 MG, 1X/DAY)
     Route: 048
     Dates: start: 20210211, end: 20210211
  9. METHYLPREDNISOLONE. [Suspect]
     Active Substance: METHYLPREDNISOLONE
     Dosage: 96 MILLIGRAM, QD (96 MG, 1X/DAY)
     Route: 048
     Dates: start: 20210212, end: 20210212
  10. METHYLPREDNISOLONE. [Suspect]
     Active Substance: METHYLPREDNISOLONE
     Dosage: 64 MILLIGRAM, QD (64 MG, 1X/DAY)
     Route: 048
     Dates: start: 20210219, end: 20210223
  11. METHYLPREDNISOLONE. [Suspect]
     Active Substance: METHYLPREDNISOLONE
     Dosage: 80 MILLIGRAM, QD (80 MG, 1X/DAY)
     Route: 048
     Dates: start: 20210213, end: 20210215

REACTIONS (4)
  - Lactic acidosis [Recovered/Resolved]
  - Epilepsy [Recovered/Resolved]
  - Acute kidney injury [Not Recovered/Not Resolved]
  - Sepsis [Fatal]

NARRATIVE: CASE EVENT DATE: 20210209
